FAERS Safety Report 8223354-7 (Version None)
Quarter: 2012Q1

REPORT INFORMATION
  Report Type: 
  Country: None (occurrence: None)
  Receive Date: 20120313
  Receipt Date: 20120229
  Transmission Date: 20120608
  Serious: Yes (Hospitalization)
  Sender: FDA-Public Use
  Company Number: 2012SP011422

PATIENT
  Age: 58 Year
  Sex: Female

DRUGS (5)
  1. TRUVADA [Concomitant]
  2. VICTRELIS [Suspect]
     Indication: HEPATITIS C
     Dosage: PO
     Route: 048
     Dates: start: 20111210, end: 20120120
  3. COPEGUS [Suspect]
     Indication: HEPATITIS C
     Dosage: 2 DF;QD;PO
     Route: 048
     Dates: start: 20111101, end: 20120120
  4. REYATAZ [Concomitant]
  5. PEGASYS [Suspect]
     Indication: HEPATITIS C
     Dates: start: 20111101, end: 20120120

REACTIONS (4)
  - GLAUCOMA [None]
  - CONDITION AGGRAVATED [None]
  - MALAISE [None]
  - SYNCOPE [None]
